FAERS Safety Report 18630350 (Version 2)
Quarter: 2021Q4

REPORT INFORMATION
  Report Type: Report from Study
  Country: US (occurrence: US)
  Receive Date: 20201217
  Receipt Date: 20211228
  Transmission Date: 20220303
  Serious: Yes (Other)
  Sender: FDA-Public Use
  Company Number: US-NOVARTISPH-NVSC2020US333026

PATIENT
  Sex: Female

DRUGS (1)
  1. XIIDRA [Suspect]
     Active Substance: LIFITEGRAST
     Indication: Product used for unknown indication
     Route: 065

REACTIONS (7)
  - Dementia [Unknown]
  - Dementia Alzheimer^s type [Unknown]
  - Disease progression [Unknown]
  - Amnesia [Unknown]
  - Visual impairment [Unknown]
  - Arthritis [Unknown]
  - Muscle spasms [Unknown]
